FAERS Safety Report 7592599-1 (Version None)
Quarter: 2011Q3

REPORT INFORMATION
  Report Type: 
  Country: None (occurrence: None)
  Receive Date: 20110706
  Receipt Date: 20110617
  Transmission Date: 20111222
  Serious: No
  Sender: FDA-Public Use
  Company Number: US-B.I. PHARMACEUTICALS,INC./RIDGEFIELD-2011-BP-15731BP

PATIENT
  Sex: Male

DRUGS (3)
  1. PRADAXA [Suspect]
     Indication: ATRIAL FIBRILLATION
     Dosage: 300 MG
     Route: 048
     Dates: start: 20110601
  2. TERAZOSIN HCL [Concomitant]
     Indication: PROSTATIC DISORDER
  3. RAMIPRIL [Concomitant]
     Indication: HYPERTENSION

REACTIONS (1)
  - NASOPHARYNGITIS [None]
